FAERS Safety Report 5504110-7 (Version None)
Quarter: 2007Q4

REPORT INFORMATION
  Report Type: 
  Country: None (occurrence: None)
  Receive Date: 20071030
  Receipt Date: 20070726
  Transmission Date: 20080405
  Serious: No
  Sender: FDA-Public Use
  Company Number: 266211

PATIENT
  Age: 51 Year
  Sex: Male

DRUGS (1)
  1. LEVEMIR [Suspect]
     Indication: TYPE 2 DIABETES MELLITUS
     Dosage: 60 IU, QD (BEDTIME), SUBCUTANEOUS
     Route: 058
     Dates: start: 20070109, end: 20070625

REACTIONS (1)
  - MYALGIA [None]
